FAERS Safety Report 8503324 (Version 2)
Quarter: 2017Q2

REPORT INFORMATION
  Report Type: Spontaneous
  Country: US (occurrence: US)
  Receive Date: 20120406
  Receipt Date: 20170424
  Transmission Date: 20170830
  Serious: Yes (Death)
  Sender: FDA-Public Use
  Company Number: PHEH2012US006969

PATIENT
  Age: 57 Year
  Sex: Female

DRUGS (1)
  1. MYFORTIC [Suspect]
     Active Substance: MYCOPHENOLATE SODIUM
     Indication: LUNG TRANSPLANT
     Dosage: 75 MG, BID
     Route: 048
     Dates: start: 20110706

REACTIONS (1)
  - Lung transplant rejection [Fatal]

NARRATIVE: CASE EVENT DATE: 20120229
